FAERS Safety Report 9924840 (Version 1)
Quarter: 2014Q1

REPORT INFORMATION
  Report Type: Spontaneous
  Country: US (occurrence: None)
  Receive Date: 20140221
  Receipt Date: 20140221
  Transmission Date: 20141002
  Serious: Yes (Hospitalization)
  Sender: FDA-Public Use
  Company Number: 2182354

PATIENT
  Age: 9 Month
  Sex: Female

DRUGS (1)
  1. FOSPHENYTOIN SODIIUM [Suspect]
     Indication: CONVULSION
     Dosage: 125 MG / KG MILLIGRAM (S) / KILOGRAM, INTRAVENOUS (NOT OTHERWISE SPECIFIED)?
     Route: 042

REACTIONS (12)
  - Overdose [None]
  - Iatrogenic injury [None]
  - Cardiac disorder [None]
  - Acute respiratory failure [None]
  - Tachycardia [None]
  - General physical health deterioration [None]
  - Hypotension [None]
  - Hypoxia [None]
  - Peripheral pulse decreased [None]
  - Cardiogenic shock [None]
  - Drug level increased [None]
  - Haemodynamic test abnormal [None]
